FAERS Safety Report 4294527-3 (Version None)
Quarter: 2004Q1

REPORT INFORMATION
  Report Type: 
  Country: None (occurrence: None)
  Receive Date: 20040211
  Receipt Date: 20040126
  Transmission Date: 20041129
  Serious: Yes (Hospitalization)
  Sender: FDA-Public Use
  Company Number: WAES 0307USA02530

PATIENT
  Age: 84 Year
  Sex: Male

DRUGS (3)
  1. COZAAR [Suspect]
     Indication: HYPERTENSION
     Dosage: 50 MG/DAILY
     Route: 048
     Dates: start: 20011108
  2. AMLODIPINE BESYLATE [Concomitant]
  3. ATORVASTATIN CALCIUM [Concomitant]

REACTIONS (2)
  - GASTRIC CANCER [None]
  - METASTASES TO LYMPH NODES [None]
